FAERS Safety Report 10397049 (Version 1)
Quarter: 2014Q3

REPORT INFORMATION
  Report Type: Spontaneous
  Country: US (occurrence: US)
  Receive Date: 20140820
  Receipt Date: 20140820
  Transmission Date: 20150326
  Serious: Yes (Other)
  Sender: FDA-Public Use
  Company Number: US-BAYER-2014-118649

PATIENT
  Age: 55 Year
  Sex: Female
  Weight: 74 kg

DRUGS (2)
  1. CAMPHO-PHENIQUE ANTISEPTIC LIQUID [Suspect]
     Active Substance: CAMPHORATED PHENOL
     Indication: RASH PRURITIC
     Dosage: UNK, TWICE DAILY
     Dates: start: 201402, end: 201407
  2. CAMPHO-PHENIQUE ANTISEPTIC LIQUID [Suspect]
     Active Substance: CAMPHORATED PHENOL
     Indication: FUNGAL INFECTION

REACTIONS (3)
  - Fungal skin infection [Not Recovered/Not Resolved]
  - Incorrect drug administration duration [None]
  - Medication error [None]

NARRATIVE: CASE EVENT DATE: 201402
